FAERS Safety Report 8024835-1 (Version None)
Quarter: 2012Q1

REPORT INFORMATION
  Report Type: 
  Country: None (occurrence: None)
  Receive Date: 20120105
  Receipt Date: 20111230
  Transmission Date: 20120608
  Serious: Yes (Life-Threatening, Hospitalization)
  Sender: FDA-Public Use
  Company Number: DE-ELI_LILLY_AND_COMPANY-DE201112007731

PATIENT
  Age: 60 Year
  Sex: Male
  Weight: 89 kg

DRUGS (7)
  1. CISPLATIN [Suspect]
     Indication: NON-SMALL CELL LUNG CANCER
     Dosage: 75 MG/M2, EVERY 3 WKS
     Route: 042
     Dates: start: 20111214
  2. ONDANSETRON [Concomitant]
     Dosage: 8 MG, UNK
     Dates: start: 20111214, end: 20111216
  3. APREPITANT [Concomitant]
     Dosage: 125/80 MG
     Dates: start: 20111214, end: 20111216
  4. GEMCITABINE HYDROCHLORIDE [Suspect]
     Indication: NON-SMALL CELL LUNG CANCER
     Dosage: 1250 MG/M2, UNK
     Route: 042
     Dates: start: 20111214
  5. CETUXIMAB [Suspect]
     Dosage: 400 MG/M2, WEEKLY (1/W)
     Route: 042
     Dates: start: 20111228
  6. CETUXIMAB [Suspect]
     Indication: NON-SMALL CELL LUNG CANCER
     Dosage: 400 MG/M2, WEEKLY (1/W)
     Route: 042
     Dates: start: 20111214, end: 20111214
  7. FORTECORTIN [Concomitant]
     Indication: ANTIALLERGIC THERAPY
     Dosage: 16 MG, QD
     Dates: start: 20111214, end: 20111216

REACTIONS (3)
  - NEUTROPENIA [None]
  - DIVERTICULAR PERFORATION [None]
  - CONSTIPATION [None]
